FAERS Safety Report 8067182-4 (Version None)
Quarter: 2012Q1

REPORT INFORMATION
  Report Type: 
  Country: None (occurrence: None)
  Receive Date: 20120124
  Receipt Date: 20120120
  Transmission Date: 20120608
  Serious: Yes (Disabling, Other)
  Sender: FDA-Public Use
  Company Number: US-GLAXOSMITHKLINE-A0927328A

PATIENT
  Age: 19 Year
  Sex: Female

DRUGS (3)
  1. LAMICTAL XR [Suspect]
     Indication: CONVULSION
     Dosage: 400MG AT NIGHT
     Route: 048
     Dates: start: 20101014
  2. ZONEGRAN [Concomitant]
  3. NEOCON [Concomitant]

REACTIONS (10)
  - DRUG LEVEL DECREASED [None]
  - PRODUCT QUALITY ISSUE [None]
  - EXPIRED DRUG ADMINISTERED [None]
  - DISORIENTATION [None]
  - DRUG INEFFECTIVE [None]
  - MEMORY IMPAIRMENT [None]
  - SOMNOLENCE [None]
  - LOSS OF CONSCIOUSNESS [None]
  - CONVULSION [None]
  - IMPAIRED DRIVING ABILITY [None]
